FAERS Safety Report 4576793-X (Version None)
Quarter: 2005Q1

REPORT INFORMATION
  Report Type: 
  Country: None (occurrence: None)
  Receive Date: 20050207
  Receipt Date: 20050126
  Transmission Date: 20050727
  Serious: Yes (Disabling, Other)
  Sender: FDA-Public Use
  Company Number: 2005002328

PATIENT
  Age: 84 Year
  Sex: Female

DRUGS (10)
  1. NEURONTIN [Suspect]
     Indication: POST HERPETIC NEURALGIA
     Dosage: 300 MG (100 MG, 3 IN 1 D)
  2. ALPRAZOLAM (ALPRAZOLAM) [Concomitant]
  3. ANALGESICS (ANALGESICS) [Concomitant]
  4. ALL OTHER THERAPEUTIC PROUDCTS(ALL OTHER THERAPEUTIC PROUDCTS) [Concomitant]
  5. LOVASTATIN [Concomitant]
  6. METOPROLOL TARTRATE [Concomitant]
  7. LEVOTHYROXINE SODIUM [Concomitant]
  8. LOSARTAN POTASSIUM (LOSARTAN POSTASSIUM) [Concomitant]
  9. TORSEMIDE [Concomitant]
  10. ,, [Concomitant]

REACTIONS (6)
  - BALANCE DISORDER [None]
  - CONSTIPATION [None]
  - DEPRESSION [None]
  - HALLUCINATION [None]
  - INCOHERENT [None]
  - WEIGHT DECREASED [None]
